FAERS Safety Report 7774567-X (Version None)
Quarter: 2011Q3

REPORT INFORMATION
  Report Type: 
  Country: None (occurrence: None)
  Receive Date: 20110923
  Receipt Date: 20110914
  Transmission Date: 20111222
  Serious: Yes (Life-Threatening, Hospitalization)
  Sender: FDA-Public Use
  Company Number: US-ROCHE-796868

PATIENT
  Sex: Female
  Weight: 48.1 kg

DRUGS (7)
  1. PACLITAXEL [Suspect]
     Indication: OVARIAN EPITHELIAL CANCER
     Dosage: OVER 01 HR ON DAY 1, 8 AND 15. 80 MG/M2 DOSE REDUCED
     Route: 042
     Dates: start: 20110511
  2. CARBOPLATIN [Suspect]
     Indication: OVARIAN EPITHELIAL CANCER
     Dosage: AUC 6 ON DAY 1 DOSE REDUCED
     Route: 042
     Dates: start: 20110511
  3. CARBOPLATIN [Suspect]
     Dosage: REDUCED DOSE
     Route: 042
  4. BEVACIZUMAB [Suspect]
     Indication: OVARIAN EPITHELIAL CANCER
     Dosage: PHASE A (CYCLE 1-6), CYCLE=3 WEEKS OVER 30-90MIN ON DAY 1. LAST DOSE PRIOR TO SAE: 21 JUNE 2011.
     Route: 042
     Dates: start: 20110511
  5. ENOXAPARIN [Concomitant]
  6. PACLITAXEL [Suspect]
     Dosage: REDUCED DOSE
     Route: 042
  7. BEVACIZUMAB [Suspect]
     Dosage: DOSE REDUCED
     Route: 042

REACTIONS (9)
  - HYPOXIA [None]
  - ABDOMINAL INFECTION [None]
  - EMBOLISM [None]
  - SMALL INTESTINAL OBSTRUCTION [None]
  - WEIGHT DECREASED [None]
  - PLEURAL EFFUSION [None]
  - OPPORTUNISTIC INFECTION [None]
  - SEROMA [None]
  - DYSPNOEA [None]
